FAERS Safety Report 24412027 (Version 1)
Quarter: 2024Q4

REPORT INFORMATION
  Report Type: Spontaneous
  Country: ES (occurrence: ES)
  Receive Date: 20241008
  Receipt Date: 20241008
  Transmission Date: 20250115
  Serious: Yes (Hospitalization)
  Sender: PFIZER
  Company Number: None

PATIENT
  Age: 67 Year
  Sex: Female

DRUGS (3)
  1. METHYLPREDNISOLONE SODIUM SUCCINATE [Interacting]
     Active Substance: METHYLPREDNISOLONE SODIUM SUCCINATE
     Indication: Colitis ulcerative
     Dosage: 40 MG, CYCLIC; EVERY 8 WEEKS
     Route: 042
     Dates: start: 2023, end: 202406
  2. METHOTREXATE SODIUM [Interacting]
     Active Substance: METHOTREXATE SODIUM
     Indication: Colitis ulcerative
     Dosage: 10 MG, WEEKLY
     Route: 048
     Dates: start: 202207, end: 202406
  3. INFLIXIMAB [Interacting]
     Active Substance: INFLIXIMAB
     Indication: Colitis ulcerative
     Dosage: 375 MG, CYCLIC; EVER 4 WEEKS
     Route: 042
     Dates: start: 2022, end: 202406

REACTIONS (4)
  - Drug interaction [Recovered/Resolved]
  - Septic shock [Recovered/Resolved]
  - Abdominal infection [Recovered/Resolved]
  - Off label use [Unknown]

NARRATIVE: CASE EVENT DATE: 20240610
